FAERS Safety Report 5025090-7 (Version None)
Quarter: 2006Q2

REPORT INFORMATION
  Report Type: 
  Country: None (occurrence: None)
  Receive Date: 20060607
  Receipt Date: 20060524
  Transmission Date: 20061013
  Serious: Yes (Death)
  Sender: FDA-Public Use
  Company Number: 2006-02059

PATIENT
  Age: 48 Year
  Sex: Female
  Weight: 52.2 kg

DRUGS (3)
  1. HYDROCODONE BITARTRATE + ACETAMINOPHEN [Suspect]
     Indication: PAIN
     Dosage: 1 TABLET, Q6H, ORAL
     Route: 048
     Dates: start: 20000101, end: 20060227
  2. CARISOPRODOL [Concomitant]
  3. UNSP. HORMONE REPLACEMENT THERAPY [Concomitant]

REACTIONS (5)
  - ACCIDENTAL DEATH [None]
  - CARDIAC DISORDER [None]
  - DRUG TOXICITY [None]
  - ENERGY INCREASED [None]
  - PSYCHOMOTOR HYPERACTIVITY [None]
